FAERS Safety Report 18807643 (Version 1)
Quarter: 2021Q1

REPORT INFORMATION
  Report Type: Spontaneous
  Country: US (occurrence: US)
  Receive Date: 20210129
  Receipt Date: 20210129
  Transmission Date: 20210419
  Serious: No
  Sender: FDA-Public Use
  Company Number: US-TEVA-2021-US-1873609

PATIENT
  Age: 48 Year
  Sex: Male

DRUGS (1)
  1. CLONAZEPAM TEVA [Suspect]
     Active Substance: CLONAZEPAM
     Indication: MUSCLE TIGHTNESS
     Dosage: 3 MILLIGRAM DAILY;
     Route: 065

REACTIONS (8)
  - Feeling abnormal [Unknown]
  - Disturbance in attention [Unknown]
  - Dysarthria [Unknown]
  - Dyspnoea [Unknown]
  - Muscle tightness [Unknown]
  - Dizziness [Unknown]
  - Disorientation [Unknown]
  - Drug intolerance [Unknown]

NARRATIVE: CASE EVENT DATE: 202101
